FAERS Safety Report 8520361-1 (Version None)
Quarter: 2012Q3

REPORT INFORMATION
  Report Type: 
  Country: None (occurrence: None)
  Receive Date: 20120709
  Receipt Date: 20120625
  Transmission Date: 20120928
  Serious: Yes (Other)
  Sender: FDA-Public Use
  Company Number: 2011MA002609

PATIENT
  Sex: Male

DRUGS (35)
  1. RISPERIDONE [Concomitant]
  2. CEPHALEXIN [Concomitant]
  3. SENNA-MINT WAF [Concomitant]
  4. ENULOSE [Concomitant]
  5. OMEPRAZOLE [Concomitant]
  6. BISACODYL [Concomitant]
  7. VIGAMOX [Concomitant]
  8. NASONEX [Concomitant]
  9. FLOVENT [Concomitant]
  10. HYDROCODONE BITARTRATE AND ACETAMINOPHEN [Concomitant]
  11. STRATTERA [Concomitant]
  12. AMOXICILLIN [Concomitant]
  13. METHYLPHENIDATE [Concomitant]
  14. OVAR [Concomitant]
  15. HYDROXYZINE [Concomitant]
  16. CODEINE PHOSPHATE AND ACETAMINOPHEN [Concomitant]
  17. VYVANSE [Concomitant]
  18. PROAIR HFA [Concomitant]
  19. FLUOXETINE HCL [Concomitant]
  20. RITALIN [Concomitant]
  21. PREDNISOLONE [Concomitant]
  22. CYPROHEPTADINE HCL [Concomitant]
  23. CEFDINIR [Concomitant]
  24. TOBRAMYCIN [Concomitant]
  25. ALBUTEROL [Concomitant]
  26. ZITHROMAX [Concomitant]
  27. CARAFATE [Concomitant]
  28. SINGULAIR [Concomitant]
  29. METOCLOPRAMIDE [Suspect]
     Indication: PRODUCT USED FOR UNKNOWN INDICATION
     Dosage: 5 MG/5 ML;1 TSP Q6HR;PO
     Dates: start: 20010314, end: 20110201
  30. BUPROPION HCL [Concomitant]
  31. CITALOPRAM HYDROBROMIDE [Concomitant]
  32. GRIS-PEG [Concomitant]
  33. FLOXIN [Concomitant]
  34. LORATADINE [Concomitant]
  35. ZANTAC [Concomitant]

REACTIONS (8)
  - TREMOR [None]
  - AKATHISIA [None]
  - MOVEMENT DISORDER [None]
  - TARDIVE DYSKINESIA [None]
  - DYSTONIA [None]
  - EXTRAPYRAMIDAL DISORDER [None]
  - ECONOMIC PROBLEM [None]
  - EMOTIONAL DISORDER [None]
